FAERS Safety Report 8591431-7 (Version None)
Quarter: 2012Q3

REPORT INFORMATION
  Report Type: 
  Country: None (occurrence: None)
  Receive Date: 20120803
  Receipt Date: 20120803
  Transmission Date: 20120928
  Serious: Yes (Hospitalization)
  Sender: FDA-Public Use
  Company Number: None

PATIENT
  Sex: 0
  Weight: 108.4 kg

DRUGS (2)
  1. LEUPROLIDE ACETATE [Suspect]
     Dosage: 22.5 MG
  2. TAXOTERE [Suspect]
     Dosage: 174 MG

REACTIONS (2)
  - NEUTROPENIA [None]
  - FEBRILE NEUTROPENIA [None]
